FAERS Safety Report 23693004 (Version 3)
Quarter: 2024Q2

REPORT INFORMATION
  Report Type: Spontaneous
  Country: US (occurrence: US)
  Receive Date: 20240401
  Receipt Date: 20240605
  Transmission Date: 20240716
  Serious: No
  Sender: FDA-Public Use
  Company Number: US-SA-SAC20240327001001

PATIENT
  Age: 37 Year
  Sex: Female

DRUGS (1)
  1. DUPIXENT [Suspect]
     Active Substance: DUPILUMAB
     Indication: Nasal polyps
     Dosage: 300 MG, QOW
     Route: 058
     Dates: start: 20231129

REACTIONS (7)
  - Influenza [Recovered/Resolved]
  - COVID-19 [Recovering/Resolving]
  - Sinus congestion [Recovered/Resolved]
  - Facial pain [Recovering/Resolving]
  - Nasopharyngitis [Recovered/Resolved]
  - Nasal congestion [Recovering/Resolving]
  - Sinusitis [Recovered/Resolved]

NARRATIVE: CASE EVENT DATE: 20231201
